FAERS Safety Report 5097538-3 (Version None)
Quarter: 2006Q3

REPORT INFORMATION
  Report Type: 
  Country: None (occurrence: None)
  Receive Date: 20060901
  Receipt Date: 20060809
  Transmission Date: 20061208
  Serious: Yes (Hospitalization)
  Sender: FDA-Public Use
  Company Number: 2000028156JP

PATIENT
  Age: 67 Year
  Sex: Male

DRUGS (10)
  1. IRINOTECAN HCL [Suspect]
     Indication: SMALL CELL LUNG CANCER STAGE UNSPECIFIED
     Dosage: 171 MG, SINGLE
     Dates: start: 20000613, end: 20000613
  2. ZOFRAN [Concomitant]
  3. DECADRON [Concomitant]
  4. PRIMPERAN TAB [Concomitant]
  5. CLONAZEPAM [Concomitant]
  6. MUCOSTA (REBAMIPIDE) [Concomitant]
  7. DEPAS (ETIZOLAM) [Concomitant]
  8. MAGNESIUM OXIDE [Concomitant]
  9. SALICYLAMIDE [Concomitant]
  10. PIPERACILLIN SODIUM [Concomitant]

REACTIONS (1)
  - INTERSTITIAL LUNG DISEASE [None]
